FAERS Safety Report 9351584 (Version 2)
Quarter: 2013Q2

REPORT INFORMATION
  Report Type: Report from Study
  Country: AU (occurrence: AU)
  Receive Date: 20130617
  Receipt Date: 20130628
  Transmission Date: 20140414
  Serious: Yes (Other)
  Sender: FDA-Public Use
  Company Number: PHHY2013AU061519

PATIENT
  Age: 75 Year
  Sex: Female

DRUGS (19)
  1. ACLASTA [Suspect]
     Dosage: UNK
     Route: 042
     Dates: start: 20100322
  2. ACLASTA [Suspect]
     Dosage: UNK
     Route: 042
     Dates: start: 20110321
  3. ACLASTA [Suspect]
     Dosage: UNK
     Route: 042
     Dates: start: 20120515
  4. ASTRIX [Concomitant]
     Dosage: 100 MG, 1 IN THE MORNING
  5. AZITHROMYCIN [Concomitant]
     Dosage: 500 MG, ONE TWICE A DAY
  6. CIPROFLOXACIN [Concomitant]
     Dosage: 500 MG, UNK
  7. CLOBETASONE [Concomitant]
     Dosage: UNK ONE DAILY
  8. FOLIC ACID [Concomitant]
     Dosage: 5 MG, 1 TWICE A WEEK
  9. GABAPENTIN [Concomitant]
     Dosage: 100 MG, ONE THREE TIMES A DAY
  10. METHOTREXAT [Concomitant]
     Dosage: 10 MG, ONE AND HALF ONCE A WEEK
  11. MOTILIUM ^BYK GULDEN^ [Concomitant]
     Dosage: 10 MG, THREE TIMES A DAY
  12. NEXIAM [Concomitant]
     Dosage: 20 MG, ONE IN THE MORNING
  13. PANAMAX [Concomitant]
     Dosage: 500 MG, 1-2 EVERY 6 HOUR PRN
  14. PLAQUENIL [Concomitant]
     Dosage: 200 MG, ONE TWICE A DAY
  15. PRAVACHOL [Concomitant]
     Dosage: 20 MG, OE BEFORE BED
  16. RIFAMPICIN [Concomitant]
     Dosage: 150 MG, 3 IN THE MORNING
  17. TEMAZE [Concomitant]
     Dosage: 10 MG, ONE IN THE MORNING
  18. VISTIL [Concomitant]
     Dosage: UNK ONE TWICE A DAY
  19. XALATAN [Concomitant]
     Dosage: 50  MCG/ML IN THE EVENING

REACTIONS (2)
  - Femoral neck fracture [Recovering/Resolving]
  - Joint dislocation [Recovering/Resolving]
